FAERS Safety Report 17219220 (Version 1)
Quarter: 2020Q1

REPORT INFORMATION
  Report Type: Spontaneous
  Country: US (occurrence: US)
  Receive Date: 20191230
  Receipt Date: 20191230
  Transmission Date: 20200409
  Serious: Yes (Hospitalization, Disabling, Other)
  Sender: FDA-Public Use
  Company Number: None

PATIENT
  Age: 11 Year
  Sex: Male
  Weight: 36 kg

DRUGS (1)
  1. MIRALAX [Suspect]
     Active Substance: POLYETHYLENE GLYCOL 3350
     Indication: CONSTIPATION
     Route: 048
     Dates: start: 20191129, end: 20191129

REACTIONS (7)
  - Fatigue [None]
  - Tremor [None]
  - Product prescribing issue [None]
  - Syncope [None]
  - Conversion disorder [None]
  - Confusional state [None]
  - Dyspnoea [None]

NARRATIVE: CASE EVENT DATE: 20191129
